FAERS Safety Report 8145194-X (Version None)
Quarter: 2012Q1

REPORT INFORMATION
  Report Type: 
  Country: None (occurrence: None)
  Receive Date: 20120217
  Receipt Date: 20120215
  Transmission Date: 20120608
  Serious: Yes (Death)
  Sender: FDA-Public Use
  Company Number: PHHY2012IL013238

PATIENT
  Age: 45 Year
  Sex: Female

DRUGS (1)
  1. EXJADE [Suspect]
     Indication: THALASSAEMIA
     Route: 048

REACTIONS (3)
  - DIABETES MELLITUS INADEQUATE CONTROL [None]
  - WOUND COMPLICATION [None]
  - SEPSIS [None]
